FAERS Safety Report 9307545 (Version 4)
Quarter: 2013Q2

REPORT INFORMATION
  Report Type: Report from Study
  Country: DE (occurrence: DE)
  Receive Date: 20130524
  Receipt Date: 20130612
  Transmission Date: 20140414
  Serious: Yes (Other)
  Sender: FDA-Public Use
  Company Number: DE-JNJFOC-20101207397

PATIENT
  Age: 25 Year
  Sex: Female
  Weight: 75 kg

DRUGS (5)
  1. REMICADE [Suspect]
     Indication: CROHN^S DISEASE
     Route: 042
  2. REMICADE [Suspect]
     Indication: CROHN^S DISEASE
     Dosage: AT 28 WEEKS GESTATION
     Route: 042
     Dates: start: 20101220
  3. REMICADE [Suspect]
     Indication: CROHN^S DISEASE
     Dosage: AT 21 WEEKS GESTATION
     Route: 042
     Dates: start: 20101023
  4. REMICADE [Suspect]
     Indication: CROHN^S DISEASE
     Route: 042
     Dates: start: 20100907
  5. HUMIRA [Concomitant]
     Indication: CROHN^S DISEASE

REACTIONS (2)
  - Exposure during pregnancy [Recovered/Resolved]
  - Caesarean section [Recovered/Resolved]
